FAERS Safety Report 4657870-1 (Version None)
Quarter: 2005Q2

REPORT INFORMATION
  Report Type: 
  Country: None (occurrence: None)
  Receive Date: 20050510
  Receipt Date: 20050504
  Transmission Date: 20051028
  Serious: Yes (Life-Threatening, Hospitalization)
  Sender: FDA-Public Use
  Company Number: US-MERCK-0505USA00614

PATIENT
  Age: 67 Year
  Sex: Female

DRUGS (14)
  1. ZOCOR [Suspect]
     Indication: BLOOD CHOLESTEROL INCREASED
     Route: 048
     Dates: start: 20050101, end: 20050401
  2. THIOTHIXENE [Concomitant]
     Route: 065
  3. CLONAZEPAM [Concomitant]
     Route: 065
  4. PANTOTHENIC ACID [Concomitant]
     Route: 065
  5. NADOLOL [Concomitant]
     Route: 065
  6. LEVOXYL [Concomitant]
     Route: 065
  7. ALFALFA [Concomitant]
     Route: 065
  8. NIACIN [Concomitant]
     Route: 065
  9. YEAST, DRIED [Concomitant]
     Route: 065
  10. THIAMINE [Concomitant]
     Route: 065
  11. CYANOCOBALAMIN [Concomitant]
     Route: 065
  12. BROCCOLI (AS DRUG) [Concomitant]
     Route: 065
  13. FOLIC ACID [Concomitant]
     Route: 065
  14. SELENIUM (UNSPECIFIED) [Concomitant]
     Route: 065

REACTIONS (2)
  - ASTHENIA [None]
  - HEPATIC CYST [None]
